FAERS Safety Report 25978963 (Version 1)
Quarter: 2025Q4

REPORT INFORMATION
  Report Type: Spontaneous
  Country: US (occurrence: US)
  Receive Date: 20251030
  Receipt Date: 20251030
  Transmission Date: 20260117
  Serious: Yes (Other)
  Sender: ROCHE
  Company Number: US-CHEPLA-2025012177

PATIENT
  Age: 4 Decade
  Sex: Female

DRUGS (38)
  1. VALGANCICLOVIR [Suspect]
     Active Substance: VALGANCICLOVIR
     Indication: Cytomegalovirus infection
     Dosage: 450-900 MG TWICE DAILY
     Route: 048
  2. VALGANCICLOVIR [Suspect]
     Active Substance: VALGANCICLOVIR
     Route: 048
  3. VALGANCICLOVIR [Suspect]
     Active Substance: VALGANCICLOVIR
     Route: 048
  4. GANCICLOVIR [Concomitant]
     Active Substance: GANCICLOVIR
     Indication: Cytomegalovirus infection
     Dosage: TWICE DAILY
     Route: 042
  5. GANCICLOVIR [Concomitant]
     Active Substance: GANCICLOVIR
     Dosage: TWICE DAILY, RESUMED
     Route: 042
  6. DOLUTEGRAVIR [Concomitant]
     Active Substance: DOLUTEGRAVIR
     Indication: HIV infection
     Route: 065
  7. TENOFOVIR ALAFENAMIDE [Concomitant]
     Active Substance: TENOFOVIR ALAFENAMIDE
     Indication: HIV infection
     Route: 065
  8. EMTRICITABINE [Concomitant]
     Active Substance: EMTRICITABINE
     Indication: HIV infection
     Route: 065
  9. DEXAMETHASONE [Concomitant]
     Active Substance: DEXAMETHASONE
     Indication: Hodgkin^s disease
     Route: 065
  10. DEXAMETHASONE [Concomitant]
     Active Substance: DEXAMETHASONE
     Indication: Haemophagocytic lymphohistiocytosis
  11. DEXAMETHASONE [Concomitant]
     Active Substance: DEXAMETHASONE
     Indication: Hypophagia
  12. DEXAMETHASONE [Concomitant]
     Active Substance: DEXAMETHASONE
     Indication: Vomiting
  13. DEXAMETHASONE [Concomitant]
     Active Substance: DEXAMETHASONE
     Indication: Diarrhoea
  14. CYCLOPHOSPHAMIDE [Concomitant]
     Active Substance: CYCLOPHOSPHAMIDE
     Indication: Hodgkin^s disease
     Route: 065
  15. CYCLOPHOSPHAMIDE [Concomitant]
     Active Substance: CYCLOPHOSPHAMIDE
     Indication: Haemophagocytic lymphohistiocytosis
  16. CYCLOPHOSPHAMIDE [Concomitant]
     Active Substance: CYCLOPHOSPHAMIDE
     Indication: Hypophagia
  17. CYCLOPHOSPHAMIDE [Concomitant]
     Active Substance: CYCLOPHOSPHAMIDE
     Indication: Vomiting
  18. CYCLOPHOSPHAMIDE [Concomitant]
     Active Substance: CYCLOPHOSPHAMIDE
     Indication: Diarrhoea
  19. DOXORUBICIN [Concomitant]
     Active Substance: DOXORUBICIN
     Indication: Hodgkin^s disease
     Route: 065
  20. DOXORUBICIN [Concomitant]
     Active Substance: DOXORUBICIN
     Indication: Haemophagocytic lymphohistiocytosis
  21. DOXORUBICIN [Concomitant]
     Active Substance: DOXORUBICIN
     Indication: Hypophagia
  22. DOXORUBICIN [Concomitant]
     Active Substance: DOXORUBICIN
     Indication: Vomiting
  23. DOXORUBICIN [Concomitant]
     Active Substance: DOXORUBICIN
     Indication: Diarrhoea
  24. VINBLASTINE [Concomitant]
     Active Substance: VINBLASTINE
     Indication: Hodgkin^s disease
     Route: 065
  25. VINBLASTINE [Concomitant]
     Active Substance: VINBLASTINE
     Indication: Haemophagocytic lymphohistiocytosis
  26. VINBLASTINE [Concomitant]
     Active Substance: VINBLASTINE
     Indication: Hypophagia
  27. VINBLASTINE [Concomitant]
     Active Substance: VINBLASTINE
     Indication: Vomiting
  28. VINBLASTINE [Concomitant]
     Active Substance: VINBLASTINE
     Indication: Diarrhoea
  29. DACARBAZINE [Concomitant]
     Active Substance: DACARBAZINE
     Indication: Hodgkin^s disease
     Route: 065
  30. DACARBAZINE [Concomitant]
     Active Substance: DACARBAZINE
     Indication: Haemophagocytic lymphohistiocytosis
  31. DACARBAZINE [Concomitant]
     Active Substance: DACARBAZINE
     Indication: Hypophagia
  32. DACARBAZINE [Concomitant]
     Active Substance: DACARBAZINE
     Indication: Vomiting
  33. DACARBAZINE [Concomitant]
     Active Substance: DACARBAZINE
     Indication: Diarrhoea
  34. ACYCLOVIR [Concomitant]
     Active Substance: ACYCLOVIR
     Indication: Genital ulceration
     Route: 048
  35. ACYCLOVIR [Concomitant]
     Active Substance: ACYCLOVIR
     Indication: Herpes simplex
     Dosage: 5-10 MG/KG DAILY
     Route: 042
  36. ACYCLOVIR [Concomitant]
     Active Substance: ACYCLOVIR
     Indication: Prophylaxis
  37. CIDOFOVIR [Concomitant]
     Active Substance: CIDOFOVIR
     Indication: Genital ulceration
     Dosage: 4 WEEKS OF TREATMENT
     Route: 061
  38. CIDOFOVIR [Concomitant]
     Active Substance: CIDOFOVIR
     Indication: Herpes simplex

REACTIONS (2)
  - Neutropenia [Unknown]
  - Off label use [Unknown]
